FAERS Safety Report 4333892-5 (Version None)
Quarter: 2004Q2

REPORT INFORMATION
  Report Type: 
  Country: None (occurrence: None)
  Receive Date: 20040402
  Receipt Date: 20040324
  Transmission Date: 20050107
  Serious: Yes (Other)
  Sender: FDA-Public Use
  Company Number: 2004203077US

PATIENT
  Age: 48 Year
  Sex: Female
  Weight: 89.8 kg

DRUGS (1)
  1. CELEBREX [Suspect]
     Indication: DYSMENORRHOEA
     Dosage: 200 MG, PRN, ORAL
     Route: 048
     Dates: start: 20020901, end: 20040310

REACTIONS (8)
  - AGITATION [None]
  - BLOOD PRESSURE DECREASED [None]
  - DRUG HYPERSENSITIVITY [None]
  - DYSURIA [None]
  - HEART RATE DECREASED [None]
  - PRURITUS [None]
  - PULSE ABSENT [None]
  - RESTLESSNESS [None]
